FAERS Safety Report 16382015 (Version 3)
Quarter: 2019Q3

REPORT INFORMATION
  Report Type: Spontaneous
  Country: ZA (occurrence: ZA)
  Receive Date: 20190603
  Receipt Date: 20190819
  Transmission Date: 20191004
  Serious: Yes (Other)
  Sender: FDA-Public Use
  Company Number: ZA-SA-2019SA142098

PATIENT

DRUGS (1)
  1. CLEXANE [Suspect]
     Active Substance: ENOXAPARIN SODIUM
     Dosage: 60 MG, BID
     Route: 058
     Dates: start: 20190518

REACTIONS (2)
  - Drug ineffective [Unknown]
  - Renal failure [Unknown]
